FAERS Safety Report 18191829 (Version 1)
Quarter: 2020Q3

REPORT INFORMATION
  Report Type: Spontaneous
  Country: US (occurrence: US)
  Receive Date: 20200824
  Receipt Date: 20200824
  Transmission Date: 20201103
  Serious: Yes (Other)
  Sender: FDA-Public Use
  Company Number: None

PATIENT
  Age: 33 Year
  Sex: Female
  Weight: 65.25 kg

DRUGS (4)
  1. EFFEXOR XR [Concomitant]
     Active Substance: VENLAFAXINE HYDROCHLORIDE
  2. CEPHALEXIN. [Suspect]
     Active Substance: CEPHALEXIN
     Indication: EXTERNAL EAR CELLULITIS
     Dates: start: 20200819, end: 20200824
  3. MIRENA [Concomitant]
     Active Substance: LEVONORGESTREL
  4. MIRALAX [Concomitant]
     Active Substance: POLYETHYLENE GLYCOL 3350

REACTIONS (1)
  - Dystonia [None]

NARRATIVE: CASE EVENT DATE: 20200824
